FAERS Safety Report 9166785 (Version 1)
Quarter: 2012Q4

REPORT INFORMATION
  Report Type: 
  Country: US (occurrence: US)
  Receive Date: 20121114
  Receipt Date: 20121114
  Transmission Date: 20130627
  Serious: Yes (Other)
  Sender: FDA-Public Use
  Company Number: US-RB-046569-12

PATIENT
  Age: 64 Year
  Sex: Male

DRUGS (3)
  1. SUBOXONE FILM [Suspect]
     Indication: DRUG DEPENDENCE
     Dosage: Suboxone film: dosing schedule varies
     Route: 060
  2. IMITREX [Concomitant]
     Indication: MIGRAINE
     Dosage: Dosing details unknown
     Route: 065
  3. BENZODIAZEPINE [Concomitant]
     Indication: ANXIETY
     Dosage: Dosing details unknown
     Route: 065

REACTIONS (3)
  - Hepatitis C [Not Recovered/Not Resolved]
  - Wrong technique in drug usage process [Not Recovered/Not Resolved]
  - Underdose [Not Recovered/Not Resolved]
